FAERS Safety Report 10866573 (Version 1)
Quarter: 2015Q1

REPORT INFORMATION
  Report Type: Spontaneous
  Country: US (occurrence: None)
  Receive Date: 20150220
  Receipt Date: 20150220
  Transmission Date: 20150721
  Serious: Yes (Life-Threatening, Hospitalization)
  Sender: FDA-Public Use
  Company Number: None

PATIENT
  Age: 57 Year
  Sex: Female

DRUGS (4)
  1. FEXOFENADINE [Concomitant]
     Active Substance: FEXOFENADINE\FEXOFENADINE HYDROCHLORIDE
  2. KLONOPIN [Concomitant]
     Active Substance: CLONAZEPAM
  3. AMPHETAMINE-DEXTROAMPHETAMINE ER [Concomitant]
  4. EFFEXOR XR-GENERIC PFIZER [Suspect]
     Active Substance: VENLAFAXINE HYDROCHLORIDE
     Indication: ANXIETY DISORDER
     Dosage: 1 PILL
     Route: 048
     Dates: start: 20080825, end: 20150112

REACTIONS (2)
  - Overdose [None]
  - Alcohol use [None]

NARRATIVE: CASE EVENT DATE: 20141220
